FAERS Safety Report 5170133-3 (Version None)
Quarter: 2006Q4

REPORT INFORMATION
  Report Type: 
  Country: None (occurrence: None)
  Receive Date: 20061212
  Receipt Date: 20060922
  Transmission Date: 20070319
  Serious: Yes (Hospitalization)
  Sender: FDA-Public Use
  Company Number: DE-ROCHE-464524

PATIENT
  Age: 52 Year
  Sex: Male
  Weight: 103 kg

DRUGS (6)
  1. PEGASYS [Suspect]
     Indication: HEPATITIS C
     Route: 058
     Dates: start: 20050207, end: 20060108
  2. COPEGUS [Suspect]
     Indication: HEPATITIS C
     Route: 048
     Dates: start: 20050207, end: 20050405
  3. COPEGUS [Suspect]
     Route: 048
     Dates: start: 20050406, end: 20051231
  4. COPEGUS [Suspect]
     Route: 048
     Dates: end: 20060108
  5. AMANTADINE HCL [Suspect]
     Indication: HEPATITIS C
     Route: 048
     Dates: start: 20050207, end: 20060108
  6. ESCITALOPRAM OXALATE [Concomitant]
     Indication: DEPRESSION
     Dosage: DOSAGE REGIMEN INCREASED FROM 10MG DAILY TO 20 MG DAILY ON 07 FEBRUARY 2005.
     Route: 048
     Dates: start: 20041213, end: 20060108

REACTIONS (12)
  - CARDIAC FAILURE [None]
  - DEPRESSION [None]
  - DISTURBANCE IN ATTENTION [None]
  - DRY MOUTH [None]
  - DYSPNOEA [None]
  - EMOTIONAL DISTRESS [None]
  - FATIGUE [None]
  - HYPERTROPHIC CARDIOMYOPATHY [None]
  - INFLUENZA LIKE ILLNESS [None]
  - MENTAL DISORDER [None]
  - SKIN DISORDER [None]
  - WEIGHT DECREASED [None]
